FAERS Safety Report 8151610-X (Version None)
Quarter: 2012Q1

REPORT INFORMATION
  Report Type: 
  Country: None (occurrence: None)
  Receive Date: 20120220
  Receipt Date: 20120209
  Transmission Date: 20120608
  Serious: Yes (Hospitalization, Other)
  Sender: FDA-Public Use
  Company Number: US-ASTRAZENECA-2010SE26525

PATIENT
  Age: 53 Year
  Sex: Female

DRUGS (10)
  1. LORAZEPAM [Concomitant]
  2. METFORMIN HCL [Concomitant]
  3. ANTIPYRINE BENZOCAINE [Concomitant]
     Dosage: 3-4 DROPS IN LEFT EAR FOUR TIMES DAILY
  4. CLARITHROMYCIN [Concomitant]
  5. NEXIUM [Suspect]
     Indication: GASTROOESOPHAGEAL REFLUX DISEASE
     Route: 048
     Dates: start: 20060101
  6. TRAZODONE HCL [Concomitant]
  7. METFORMIN HCL [Concomitant]
  8. SIMVASTATIN [Concomitant]
  9. LISINOPRIL [Concomitant]
     Dates: start: 20110126
  10. LIPITOR [Concomitant]
     Indication: HYPERLIPIDAEMIA

REACTIONS (18)
  - EAR INFECTION [None]
  - GASTROOESOPHAGEAL REFLUX DISEASE [None]
  - PHARYNGITIS STREPTOCOCCAL [None]
  - BLOOD CHOLESTEROL INCREASED [None]
  - BRONCHITIS [None]
  - PNEUMONIA [None]
  - FALL [None]
  - THROAT CANCER [None]
  - BLOOD GLUCOSE INCREASED [None]
  - CHEST PAIN [None]
  - PAIN [None]
  - THERAPEUTIC RESPONSE UNEXPECTED [None]
  - DRUG DOSE OMISSION [None]
  - HYPERTENSION [None]
  - INAPPROPRIATE SCHEDULE OF DRUG ADMINISTRATION [None]
  - SINUSITIS [None]
  - MULTIPLE INJURIES [None]
  - TYPE 2 DIABETES MELLITUS [None]
